FAERS Safety Report 11998188 (Version 1)
Quarter: 2016Q1

REPORT INFORMATION
  Report Type: Spontaneous
  Country: US (occurrence: None)
  Receive Date: 20160202
  Receipt Date: 20160202
  Transmission Date: 20160526
  Serious: No
  Sender: FDA-Public Use
  Company Number: None

PATIENT
  Age: 76 Year
  Sex: Female

DRUGS (21)
  1. TAMSULOSIN [Concomitant]
     Active Substance: TAMSULOSIN
  2. HC PRAMOXINE [Concomitant]
  3. PHENAZOPYRIDINE. [Concomitant]
     Active Substance: PHENAZOPYRIDINE
  4. FUROSEMIDE. [Concomitant]
     Active Substance: FUROSEMIDE
  5. XGEVA [Concomitant]
     Active Substance: DENOSUMAB
  6. ASPIRIN. [Concomitant]
     Active Substance: ASPIRIN
  7. LOSARTAM [Concomitant]
  8. FINASTERIDE. [Concomitant]
     Active Substance: FINASTERIDE
  9. NEXIUM [Concomitant]
     Active Substance: ESOMEPRAZOLE MAGNESIUM
  10. FAMOTIDINE. [Concomitant]
     Active Substance: FAMOTIDINE
  11. AZITHROMYCIN ANHYDROUS. [Concomitant]
     Active Substance: AZITHROMYCIN ANHYDROUS
  12. NORVASC [Concomitant]
     Active Substance: AMLODIPINE BESYLATE
  13. AFINITOR [Suspect]
     Active Substance: EVEROLIMUS
     Indication: RENAL CANCER
     Route: 048
     Dates: start: 20150821, end: 20160127
  14. DIAZEPAM. [Concomitant]
     Active Substance: DIAZEPAM
  15. FIBERCON [Concomitant]
     Active Substance: CALCIUM POLYCARBOPHIL
  16. NUCYNTA [Concomitant]
     Active Substance: TAPENTADOL HYDROCHLORIDE
  17. VITAMIN B12 [Concomitant]
     Active Substance: CYANOCOBALAMIN
  18. VICODIN [Concomitant]
     Active Substance: ACETAMINOPHEN\HYDROCODONE BITARTRATE
  19. BUPROPION. [Concomitant]
     Active Substance: BUPROPION
  20. TOPROL XL [Concomitant]
     Active Substance: METOPROLOL SUCCINATE
  21. SYNTHROID [Concomitant]
     Active Substance: LEVOTHYROXINE SODIUM

REACTIONS (3)
  - Disease progression [None]
  - No therapeutic response [None]
  - Anaemia [None]

NARRATIVE: CASE EVENT DATE: 20160127
